FAERS Safety Report 6959121-1 (Version None)
Quarter: 2010Q3

REPORT INFORMATION
  Report Type: 
  Country: None (occurrence: None)
  Receive Date: 20100827
  Receipt Date: 20100819
  Transmission Date: 20110219
  Serious: Yes (Hospitalization)
  Sender: FDA-Public Use
  Company Number: DSA_43780_2010

PATIENT
  Sex: Female

DRUGS (8)
  1. WELLBUTRIN XL [Suspect]
     Indication: DEPRESSION
     Dosage: (450 MG EVERY MORNING ORAL)
     Route: 048
  2. CELEXA [Concomitant]
  3. METHADONE [Concomitant]
  4. NEURONTIN [Concomitant]
  5. ANTIVERT /00072802/ [Concomitant]
  6. BENTYL [Concomitant]
  7. ALPRAZOLAM [Concomitant]
  8. CELEBREX [Concomitant]

REACTIONS (4)
  - FEELING ABNORMAL [None]
  - OEDEMA PERIPHERAL [None]
  - PYREXIA [None]
  - THROMBOSIS [None]
